FAERS Safety Report 7651032-1 (Version None)
Quarter: 2011Q3

REPORT INFORMATION
  Report Type: 
  Country: None (occurrence: None)
  Receive Date: 20110727
  Receipt Date: 20110720
  Transmission Date: 20111222
  Serious: Yes (Other)
  Sender: FDA-Public Use
  Company Number: 2011PL000107

PATIENT
  Age: 33 Year
  Sex: Female

DRUGS (5)
  1. CYCLOPHOSPHAMIDE [Concomitant]
  2. AZATHIOPRINE [Suspect]
     Indication: PRODUCT USED FOR UNKNOWN INDICATION
     Dosage: 100 MG;QD
     Dates: start: 20070301, end: 20080801
  3. BUCILLAMINE [Concomitant]
  4. PREDNISOLONE [Concomitant]
  5. METHYLPREDNISOLONE [Concomitant]

REACTIONS (1)
  - APLASIA PURE RED CELL [None]
